FAERS Safety Report 9842337 (Version 1)
Quarter: 2014Q1

REPORT INFORMATION
  Report Type: Spontaneous
  Country: US (occurrence: US)
  Receive Date: 20140124
  Receipt Date: 20140124
  Transmission Date: 20141002
  Serious: Yes (Death)
  Sender: FDA-Public Use
  Company Number: US-PFIZER INC-2014021263

PATIENT
  Age: 60 Year
  Sex: Male

DRUGS (7)
  1. SUTENT [Suspect]
     Indication: RENAL CANCER
     Dosage: 50 MG, UNK
     Dates: start: 20110727
  2. AMBIEN [Concomitant]
     Dosage: UNK
  3. COLACE [Concomitant]
     Dosage: UNK
  4. COUMADINE [Concomitant]
     Dosage: UNK
  5. HYDROCODONE W/ACETAMINOPHEN [Concomitant]
     Dosage: UNK
  6. LOVENOX [Concomitant]
     Dosage: UNK
  7. MIRALAX [Concomitant]
     Dosage: UNK

REACTIONS (1)
  - Death [Fatal]
